FAERS Safety Report 7382399-X (Version None)
Quarter: 2011Q1

REPORT INFORMATION
  Report Type: 
  Country: None (occurrence: None)
  Receive Date: 20110329
  Receipt Date: 20110309
  Transmission Date: 20110831
  Serious: Yes (Death)
  Sender: FDA-Public Use
  Company Number: US-BAYER-2011-006241

PATIENT
  Sex: Male

DRUGS (1)
  1. TRASYLOL [Suspect]
     Indication: SURGERY
     Dosage: UNK
     Route: 042
     Dates: start: 20030603

REACTIONS (7)
  - ANXIETY [None]
  - METASTATIC GASTRIC CANCER [None]
  - STRESS [None]
  - PAIN [None]
  - EMOTIONAL DISTRESS [None]
  - FEAR [None]
  - INJURY [None]
